FAERS Safety Report 10077273 (Version 2)
Quarter: 2014Q2

REPORT INFORMATION
  Report Type: Spontaneous
  Country: US (occurrence: US)
  Receive Date: 20140414
  Receipt Date: 20140414
  Transmission Date: 20141212
  Serious: No
  Sender: FDA-Public Use
  Company Number: US-BANPHARM-20131211

PATIENT
  Age: 66 Year
  Sex: Female
  Weight: 63.5 kg

DRUGS (4)
  1. ALEVE LIQUID GELS 220 MG [Suspect]
     Dosage: BID,
     Route: 048
     Dates: start: 20130414, end: 20130416
  2. LOVASTATIN [Concomitant]
  3. METFORMIN [Concomitant]
  4. LOW DOSE ASPIRIN [Concomitant]

REACTIONS (1)
  - Blood pressure increased [Unknown]
